FAERS Safety Report 18570001 (Version 1)
Quarter: 2020Q4

REPORT INFORMATION
  Report Type: Spontaneous
  Country: US (occurrence: US)
  Receive Date: 20201202
  Receipt Date: 20201202
  Transmission Date: 20210114
  Serious: Yes (Disabling, Other)
  Sender: FDA-Public Use
  Company Number: None

PATIENT
  Age: 39 Year
  Sex: Female

DRUGS (1)
  1. KLONOPIN [Suspect]
     Active Substance: CLONAZEPAM
     Indication: GENERALISED ANXIETY DISORDER
     Dosage: ?          QUANTITY:1 TABLET(S);?
     Route: 048
     Dates: start: 20171017, end: 20190617

REACTIONS (13)
  - Cognitive disorder [None]
  - Withdrawal syndrome [None]
  - Impaired work ability [None]
  - Depersonalisation/derealisation disorder [None]
  - Suicidal ideation [None]
  - Akathisia [None]
  - Tardive dyskinesia [None]
  - Hypoaesthesia [None]
  - Intrusive thoughts [None]
  - Seizure [None]
  - Dissociation [None]
  - Dystonia [None]
  - Therapy cessation [None]

NARRATIVE: CASE EVENT DATE: 20200617
